FAERS Safety Report 16264750 (Version 1)
Quarter: 2019Q2

REPORT INFORMATION
  Report Type: Spontaneous
  Country: US (occurrence: US)
  Receive Date: 20190502
  Receipt Date: 20190502
  Transmission Date: 20190711
  Serious: No
  Sender: FDA-Public Use
  Company Number: US-PFIZER INC-2019181902

PATIENT
  Age: 69 Year
  Sex: Male

DRUGS (9)
  1. FERROUS GLUCONATE [Concomitant]
     Active Substance: FERROUS GLUCONATE
     Dosage: UNK
  2. NEURONTIN [Concomitant]
     Active Substance: GABAPENTIN
     Dosage: UNK
  3. LISINOPRIL. [Concomitant]
     Active Substance: LISINOPRIL
     Dosage: UNK
  4. PSYLLIUM [PLANTAGO AFRA] [Concomitant]
     Active Substance: PLANTAGO AFRA SEED
     Dosage: UNK
  5. VALTREX [Concomitant]
     Active Substance: VALACYCLOVIR HYDROCHLORIDE
     Dosage: UNK
  6. RITALIN [Concomitant]
     Active Substance: METHYLPHENIDATE HYDROCHLORIDE
     Dosage: UNK
  7. VITAMIN B12 [Concomitant]
     Active Substance: CYANOCOBALAMIN
     Dosage: UNK
  8. ASCORBIC ACID. [Concomitant]
     Active Substance: ASCORBIC ACID
     Dosage: UNK
  9. VIAGRA [Suspect]
     Active Substance: SILDENAFIL CITRATE
     Dosage: UNK

REACTIONS (1)
  - Headache [Unknown]
